FAERS Safety Report 7998164-6 (Version None)
Quarter: 2011Q4

REPORT INFORMATION
  Report Type: 
  Country: None (occurrence: None)
  Receive Date: 20111221
  Receipt Date: 20110317
  Transmission Date: 20120403
  Serious: No
  Sender: FDA-Public Use
  Company Number: US-GLAXOSMITHKLINE-A0918677A

PATIENT
  Age: 55 Year
  Sex: Female

DRUGS (7)
  1. DIOVAN [Concomitant]
  2. LITHIUM CARBONATE [Concomitant]
  3. ASTELIN [Concomitant]
  4. SYNTHROID [Concomitant]
  5. LOVAZA [Suspect]
     Indication: BLOOD TRIGLYCERIDES INCREASED
     Dosage: 3CAP VARIABLE DOSE
     Route: 048
     Dates: start: 20090701
  6. LYRICA [Concomitant]
  7. NASONEX [Concomitant]

REACTIONS (1)
  - BLOOD TRIGLYCERIDES INCREASED [None]
